FAERS Safety Report 6502969-8 (Version None)
Quarter: 2009Q4

REPORT INFORMATION
  Report Type: 
  Country: None (occurrence: None)
  Receive Date: 20091217
  Receipt Date: 20091213
  Transmission Date: 20100525
  Serious: Yes (Life-Threatening, Hospitalization)
  Sender: FDA-Public Use
  Company Number: PHHY2009IL54797

PATIENT
  Age: 26 Year
  Sex: Male

DRUGS (6)
  1. DESFERAL [Suspect]
     Indication: IRON OVERLOAD
     Dosage: 125MG/KG
     Route: 042
     Dates: start: 20090915
  2. INSULIN [Concomitant]
  3. AMOXICILLIN [Concomitant]
  4. OMEPRAZOLE [Concomitant]
  5. CALCIUM [Concomitant]
  6. TESTOSTERONE ENANTHATE [Concomitant]

REACTIONS (1)
  - CARDIAC FAILURE [None]
